FAERS Safety Report 8911472 (Version 1)
Quarter: 2012Q4

REPORT INFORMATION
  Report Type: Spontaneous
  Country: IT (occurrence: None)
  Receive Date: 20121113
  Receipt Date: 20121113
  Transmission Date: 20130627
  Serious: Yes (Hospitalization)
  Sender: FDA-Public Use
  Company Number: AUR-APL-2012-04829

PATIENT
  Age: 35 Year
  Sex: Female

DRUGS (1)
  1. LEVOFLOXACINA [Suspect]
     Indication: BRONCHITIS
     Dosage: 1 dose unit/total, Oral
     Route: 048
     Dates: start: 20121102, end: 20121102

REACTIONS (5)
  - Rash erythematous [None]
  - Dyspnoea [None]
  - Heart rate increased [None]
  - Oxygen saturation decreased [None]
  - Rash [None]
